FAERS Safety Report 6652287-2 (Version None)
Quarter: 2010Q1

REPORT INFORMATION
  Report Type: 
  Country: None (occurrence: None)
  Receive Date: 20100323
  Receipt Date: 20100318
  Transmission Date: 20100710
  Serious: Yes (Other)
  Sender: FDA-Public Use
  Company Number: SPV1-2010-00411

PATIENT
  Age: 9 Year
  Sex: Male
  Weight: 24.1 kg

DRUGS (2)
  1. INTUNIV [Suspect]
     Indication: ATTENTION DEFICIT/HYPERACTIVITY DISORDER
     Dosage: 1 MG, 1X/DAY:QD, ORAL
     Route: 048
     Dates: start: 20100303, end: 20100303
  2. DEPAKOTE [Concomitant]

REACTIONS (2)
  - MUSCLE TWITCHING [None]
  - UNRESPONSIVE TO STIMULI [None]
